FAERS Safety Report 13973164 (Version 2)
Quarter: 2017Q4

REPORT INFORMATION
  Report Type: Spontaneous
  Country: US (occurrence: US)
  Receive Date: 20170914
  Receipt Date: 20171004
  Transmission Date: 20180321
  Serious: Yes (Other)
  Sender: FDA-Public Use
  Company Number: US-NAPPMUNDI-USA-2017-0140713

PATIENT
  Age: 68 Year
  Sex: Female
  Weight: 110 kg

DRUGS (5)
  1. VITAMIN C [Concomitant]
     Active Substance: ASCORBIC ACID
     Indication: BREAST CANCER
     Dosage: 1000 IU, TID
     Route: 048
  2. OXYCONTIN [Suspect]
     Active Substance: OXYCODONE HYDROCHLORIDE
     Indication: PAIN
     Dosage: 5 MG, Q4H
     Route: 048
     Dates: start: 201611, end: 201703
  3. MAGNESIUM CITRATE. [Concomitant]
     Active Substance: MAGNESIUM CITRATE
     Indication: BREAST CANCER
     Dosage: 200 MG, TID
     Route: 048
  4. TURMERIC [Concomitant]
     Active Substance: HERBALS\TURMERIC
     Indication: BREAST CANCER
     Dosage: UNK
     Route: 065
  5. VITAMIN D3 [Concomitant]
     Active Substance: CHOLECALCIFEROL
     Indication: BREAST CANCER
     Dosage: 2000 IU, TID
     Route: 048

REACTIONS (13)
  - Decreased appetite [Unknown]
  - Amnesia [Unknown]
  - Wound decomposition [Unknown]
  - Constipation [Unknown]
  - Intentional product use issue [Unknown]
  - Influenza [Unknown]
  - Nasopharyngitis [Unknown]
  - Weight decreased [Unknown]
  - Pain [Unknown]
  - Cough [Not Recovered/Not Resolved]
  - Mental impairment [Unknown]
  - Drug tolerance [Unknown]
  - Drug ineffective [Unknown]

NARRATIVE: CASE EVENT DATE: 201701
